FAERS Safety Report 6016451-8 (Version None)
Quarter: 2008Q4

REPORT INFORMATION
  Report Type: 
  Country: None (occurrence: None)
  Receive Date: 20081222
  Receipt Date: 20081217
  Transmission Date: 20090506
  Serious: Yes (Hospitalization)
  Sender: FDA-Public Use
  Company Number: FR-ELI_LILLY_AND_COMPANY-FR200812004572

PATIENT
  Sex: Male
  Weight: 112 kg

DRUGS (5)
  1. SOMATROPIN [Suspect]
     Dosage: 0.2 MG, DAILY (1/D)
     Dates: start: 20031003, end: 20050401
  2. LEVOTHYROX [Concomitant]
     Indication: HYPOPITUITARISM
     Dosage: UNK, UNKNOWN
     Route: 065
     Dates: start: 19910101
  3. HYDROCORTISONE [Concomitant]
     Indication: HYPOPITUITARISM
     Dosage: UNK, UNKNOWN
     Route: 065
     Dates: start: 19940101
  4. ANDROTARDYL [Concomitant]
     Indication: HYPOPITUITARISM
     Dosage: UNK, UNKNOWN
     Route: 065
     Dates: start: 19950101
  5. TAHOR [Concomitant]
     Indication: DYSLIPIDAEMIA
     Dosage: UNK, UNKNOWN
     Route: 065
     Dates: start: 19990101

REACTIONS (1)
  - DEPRESSION [None]
